FAERS Safety Report 21800905 (Version 2)
Quarter: 2023Q1

REPORT INFORMATION
  Report Type: Spontaneous
  Country: NL (occurrence: NL)
  Receive Date: 20221230
  Receipt Date: 20230228
  Transmission Date: 20230417
  Serious: Yes (Life-Threatening)
  Sender: FDA-Public Use
  Company Number: None

PATIENT
  Sex: Male
  Weight: 77 kg

DRUGS (2)
  1. AJOVY [Suspect]
     Active Substance: FREMANEZUMAB-VFRM
     Indication: Migraine
     Dosage: 1 INJECTION ON NOVEMBER 28TH, FREMANEZUMAB INJVLST 150MG/ML / AJOVY INJVLST 150MG/ML PEN 1,5ML
     Route: 065
     Dates: start: 20201128, end: 20201128
  2. AJOVY [Suspect]
     Active Substance: FREMANEZUMAB-VFRM
     Indication: Headache

REACTIONS (7)
  - Anaphylactic shock [Recovered/Resolved]
  - Constipation [Recovering/Resolving]
  - Abdominal pain [Recovering/Resolving]
  - Mucous stools [Recovering/Resolving]
  - Nausea [Recovering/Resolving]
  - Salivary hypersecretion [Recovering/Resolving]
  - Abdominal discomfort [Recovering/Resolving]
